FAERS Safety Report 25426887 (Version 1)
Quarter: 2025Q2

REPORT INFORMATION
  Report Type: Spontaneous
  Country: US (occurrence: US)
  Receive Date: 20250612
  Receipt Date: 20250612
  Transmission Date: 20250717
  Serious: No
  Sender: BAUSCH AND LOMB
  Company Number: US-BAUSCH-BL-2025-007114

PATIENT
  Age: 25 Year
  Sex: Female

DRUGS (1)
  1. CABTREO [Suspect]
     Active Substance: ADAPALENE\BENZOYL PEROXIDE\CLINDAMYCIN PHOSPHATE
     Indication: Product used for unknown indication
     Route: 061

REACTIONS (3)
  - Rash [Unknown]
  - Device breakage [Unknown]
  - Product distribution issue [Unknown]
